FAERS Safety Report 4768527-0 (Version None)
Quarter: 2005Q3

REPORT INFORMATION
  Report Type: 
  Country: None (occurrence: None)
  Receive Date: 20050914
  Receipt Date: 20050906
  Transmission Date: 20060218
  Serious: Yes (Other)
  Sender: FDA-Public Use
  Company Number: PHBS2005IT13197

PATIENT
  Age: 47 Year
  Sex: Male

DRUGS (3)
  1. ZOMETA [Suspect]
     Indication: OSTEOLYSIS
     Dosage: 4 MG, QMO
     Route: 042
     Dates: start: 20021201, end: 20050601
  2. CHEMOTHERAPEUTICS,OTHER [Concomitant]
     Route: 065
     Dates: start: 20030101
  3. STEROIDS NOS [Concomitant]
     Route: 065
     Dates: start: 20030101

REACTIONS (4)
  - BONE DEBRIDEMENT [None]
  - OSTEITIS [None]
  - OSTEOMYELITIS [None]
  - PAIN IN JAW [None]
